FAERS Safety Report 5578572-3 (Version None)
Quarter: 2007Q4

REPORT INFORMATION
  Report Type: 
  Country: None (occurrence: None)
  Receive Date: 20071227
  Receipt Date: 20071212
  Transmission Date: 20080405
  Serious: Yes (Hospitalization)
  Sender: FDA-Public Use
  Company Number: DSA_31061_2007

PATIENT
  Sex: Female

DRUGS (3)
  1. LORAZEPAM [Suspect]
     Dosage: (40 MG 1X ; ORAL)
     Route: 048
     Dates: start: 20071212, end: 20071212
  2. ACETYLSALICYLIC ACID SRT [Suspect]
     Dosage: ORAL
     Route: 048
     Dates: start: 20071212, end: 20071212
  3. DIPHENHYDRAMINE HCL [Suspect]
     Dosage: ORAL
     Route: 048
     Dates: start: 20071212, end: 20071212

REACTIONS (6)
  - HYPERVENTILATION [None]
  - MULTIPLE DRUG OVERDOSE INTENTIONAL [None]
  - MYDRIASIS [None]
  - RHABDOMYOLYSIS [None]
  - SOMNOLENCE [None]
  - SUICIDE ATTEMPT [None]
